FAERS Safety Report 4530774-0 (Version None)
Quarter: 2004Q4

REPORT INFORMATION
  Report Type: 
  Country: None (occurrence: None)
  Receive Date: 20041216
  Receipt Date: 20041126
  Transmission Date: 20050328
  Serious: Yes (Death)
  Sender: FDA-Public Use
  Company Number: GBS040514966

PATIENT
  Age: 25 Year
  Sex: Male

DRUGS (3)
  1. OLANZAPINE [Suspect]
     Dosage: 10 MG
     Dates: start: 20040315
  2. LITHIUM CARBONATE [Concomitant]
  3. IBUPROFEN [Concomitant]

REACTIONS (10)
  - CARDIAC ARREST [None]
  - EPILEPSY [None]
  - HEPATIC CONGESTION [None]
  - MANIA [None]
  - PULMONARY CONGESTION [None]
  - PULMONARY HAEMORRHAGE [None]
  - PULMONARY OEDEMA [None]
  - SALIVARY HYPERSECRETION [None]
  - SPLEEN DISORDER [None]
  - VOMITING [None]
